FAERS Safety Report 12120846 (Version 5)
Quarter: 2016Q2

REPORT INFORMATION
  Report Type: Report from Study
  Country: US (occurrence: US)
  Receive Date: 20160226
  Receipt Date: 20160427
  Transmission Date: 20160815
  Serious: Yes (Hospitalization, Other)
  Sender: FDA-Public Use
  Company Number: US-MALLINCKRODT-T201503902

PATIENT
  Age: 50 Year
  Sex: Female

DRUGS (3)
  1. REPOSITORY CORTICOTROPIN INJECTION [Suspect]
     Active Substance: CORTICOTROPIN
     Dosage: 80 UNITS TWICE WKLY
     Route: 065
     Dates: start: 201510, end: 201512
  2. REPOSITORY CORTICOTROPIN INJECTION [Suspect]
     Active Substance: CORTICOTROPIN
     Dosage: 80 UNITS TWICE WKLY
     Route: 030
     Dates: start: 20160315
  3. REPOSITORY CORTICOTROPIN INJECTION [Suspect]
     Active Substance: CORTICOTROPIN
     Indication: POLYMYOSITIS
     Dosage: 80 UNITS TWICE WKLY
     Route: 030
     Dates: start: 20150604, end: 20150930

REACTIONS (13)
  - Diarrhoea [Unknown]
  - Paraesthesia [Not Recovered/Not Resolved]
  - Drug dose omission [Not Recovered/Not Resolved]
  - Polymyositis [Recovering/Resolving]
  - Nerve root compression [Unknown]
  - Dysphagia [Recovered/Resolved]
  - Aspiration [Recovered/Resolved]
  - Mobility decreased [Not Recovered/Not Resolved]
  - Nausea [Unknown]
  - Injection site bruising [Unknown]
  - Injection site pain [Unknown]
  - Haematochezia [Unknown]
  - Hypoaesthesia [Not Recovered/Not Resolved]

NARRATIVE: CASE EVENT DATE: 20151002
